FAERS Safety Report 9871891 (Version 2)
Quarter: 2014Q1

REPORT INFORMATION
  Report Type: Spontaneous
  Country: US (occurrence: US)
  Receive Date: 20140205
  Receipt Date: 20140205
  Transmission Date: 20141002
  Serious: Yes (Hospitalization)
  Sender: FDA-Public Use
  Company Number: US-B.I. PHARMACEUTICALS,INC./RIDGEFIELD-2013-BI-42662BP

PATIENT
  Sex: Female
  Weight: 42.64 kg

DRUGS (5)
  1. PRADAXA [Suspect]
     Indication: ATRIAL FIBRILLATION
     Dosage: 75 MG
     Route: 048
     Dates: end: 20130313
  2. PRADAXA [Suspect]
     Dosage: 300 MG
     Dates: start: 20110211
  3. DILTIAZEM ER [Concomitant]
     Dosage: 75 MG
     Route: 048
  4. REQUIP [Concomitant]
     Route: 048
  5. PRAVASTATIN [Concomitant]
     Route: 048

REACTIONS (3)
  - Gastrointestinal haemorrhage [Unknown]
  - Haemorrhagic anaemia [Unknown]
  - Gastrointestinal haemorrhage [Unknown]
